FAERS Safety Report 5295243-1 (Version None)
Quarter: 2007Q2

REPORT INFORMATION
  Report Type: 
  Country: None (occurrence: None)
  Receive Date: 20070412
  Receipt Date: 20070402
  Transmission Date: 20071010
  Serious: Yes (Death, Other)
  Sender: FDA-Public Use
  Company Number: GB-PFIZER INC-2004088299

PATIENT
  Age: 45 Year
  Sex: Male

DRUGS (3)
  1. LYRICA [Suspect]
     Dosage: DAILY DOSE:150MG
     Route: 048
  2. ALCOHOL [Suspect]
  3. ALL OTHER THERAPEUTIC PRODUCTS [Suspect]

REACTIONS (3)
  - ALCOHOL USE [None]
  - CORONARY ARTERY STENOSIS [None]
  - OVERDOSE [None]
